FAERS Safety Report 6340806-5 (Version None)
Quarter: 2009Q3

REPORT INFORMATION
  Report Type: 
  Country: None (occurrence: None)
  Receive Date: 20090904
  Receipt Date: 20090826
  Transmission Date: 20100115
  Serious: Yes (Other)
  Sender: FDA-Public Use
  Company Number: PHHY2009GB09867

PATIENT
  Sex: Female

DRUGS (4)
  1. CLOZARIL [Suspect]
     Indication: SCHIZOPHRENIA
     Dosage: 600 MG, UNK
     Route: 048
     Dates: start: 20010724
  2. RISPERIDONE [Concomitant]
     Dosage: 2 MG, UNK
     Route: 048
  3. MIRTAZAPINE [Concomitant]
     Dosage: 45 MG, UNK
     Route: 048
     Dates: start: 20060101
  4. HYOSCINE [Concomitant]
     Dosage: 300 UG, UNK
     Route: 048
     Dates: start: 20060101

REACTIONS (2)
  - KNEE ARTHROPLASTY [None]
  - WEIGHT INCREASED [None]
